FAERS Safety Report 20061318 (Version 1)
Quarter: 2021Q4

REPORT INFORMATION
  Report Type: Spontaneous
  Country: US (occurrence: US)
  Receive Date: 20211112
  Receipt Date: 20211112
  Transmission Date: 20220303
  Serious: No
  Sender: FDA-Public Use
  Company Number: US-ALNYLAM PHARMACEUTICALS, INC.-ALN-2021-002874

PATIENT

DRUGS (1)
  1. GIVLAARI [Suspect]
     Active Substance: GIVOSIRAN SODIUM
     Indication: Porphyria acute
     Route: 065

REACTIONS (5)
  - Injection site necrosis [Unknown]
  - Hepatomegaly [Unknown]
  - Pain [Unknown]
  - Nephritis [Unknown]
  - Porphyria acute [Not Recovered/Not Resolved]
